FAERS Safety Report 20622202 (Version 2)
Quarter: 2022Q2

REPORT INFORMATION
  Report Type: Spontaneous
  Country: US (occurrence: US)
  Receive Date: 20220322
  Receipt Date: 20220620
  Transmission Date: 20220721
  Serious: No
  Sender: FDA-Public Use
  Company Number: US-NOVOPROD-895393

PATIENT
  Sex: Female

DRUGS (1)
  1. WEGOVY [Suspect]
     Active Substance: SEMAGLUTIDE
     Indication: Weight decreased
     Dosage: 0.5 MG, QW
     Route: 058
     Dates: start: 20220124

REACTIONS (3)
  - Drug dose titration not performed [Not Recovered/Not Resolved]
  - Product communication issue [Not Recovered/Not Resolved]
  - Weight loss poor [Unknown]
